FAERS Safety Report 20478412 (Version 3)
Quarter: 2022Q1

REPORT INFORMATION
  Report Type: Spontaneous
  Country: DE (occurrence: DE)
  Receive Date: 20220216
  Receipt Date: 20220314
  Transmission Date: 20220424
  Serious: Yes (Other)
  Sender: FDA-Public Use
  Company Number: DE-ASTPRD-AER-2022-10000000017145

PATIENT
  Age: 71 Year
  Sex: Male

DRUGS (2)
  1. XTANDI [Suspect]
     Active Substance: ENZALUTAMIDE
     Indication: Product used for unknown indication
     Route: 065
     Dates: start: 202105
  2. Wobenzym [Concomitant]
     Indication: Herpes zoster
     Dosage: UNK UNK, UNKNOWN FREQ.
     Route: 065

REACTIONS (6)
  - Malignant neoplasm progression [Unknown]
  - Loss of libido [Unknown]
  - Prostatic specific antigen increased [Not Recovered/Not Resolved]
  - Hyperhidrosis [Unknown]
  - Restless legs syndrome [Recovered/Resolved]
  - Fatigue [Unknown]
